FAERS Safety Report 9115772 (Version 2)
Quarter: 2013Q1

REPORT INFORMATION
  Report Type: Spontaneous
  Country: CH (occurrence: CH)
  Receive Date: 20130224
  Receipt Date: 20130315
  Transmission Date: 20140127
  Serious: Yes (Disabling)
  Sender: FDA-Public Use
  Company Number: CH-TEVA-386954ISR

PATIENT
  Sex: Male
  Weight: 89 kg

DRUGS (5)
  1. CARVEDILOL [Suspect]
     Indication: CARDIAC FAILURE
     Dosage: 25 MILLIGRAM DAILY; STARTED 1 AND 1/5 YEARS PRIOR TO TIME OF REPORTING
     Route: 048
     Dates: start: 201102, end: 20130301
  2. PEMZEK [Concomitant]
  3. SORTIS [Concomitant]
  4. LEVEMIR [Concomitant]
  5. NOVORAPID [Concomitant]

REACTIONS (1)
  - Pustular psoriasis [Unknown]
